FAERS Safety Report 10067555 (Version 2)
Quarter: 2014Q2

REPORT INFORMATION
  Report Type: Spontaneous
  Country: IT (occurrence: IT)
  Receive Date: 20140409
  Receipt Date: 20140521
  Transmission Date: 20141212
  Serious: Yes (Hospitalization)
  Sender: FDA-Public Use
  Company Number: IT-ROCHE-1374752

PATIENT
  Age: 36 Year
  Sex: Female

DRUGS (4)
  1. RIVOTRIL [Suspect]
     Indication: PRODUCT USED FOR UNKNOWN INDICATION
     Route: 048
     Dates: start: 20140324, end: 20140324
  2. RIVOTRIL [Suspect]
     Dosage: ONE PER TABLET
     Route: 065
  3. SEROQUEL [Suspect]
     Indication: PRODUCT USED FOR UNKNOWN INDICATION
     Route: 048
     Dates: start: 20140324, end: 20140324
  4. SEROQUEL [Suspect]
     Route: 065

REACTIONS (4)
  - Agitation [Recovering/Resolving]
  - Drug abuse [Unknown]
  - Intentional self-injury [Recovering/Resolving]
  - Sopor [Recovering/Resolving]
